FAERS Safety Report 15127528 (Version 1)
Quarter: 2018Q3

REPORT INFORMATION
  Report Type: Spontaneous
  Country: US (occurrence: US)
  Receive Date: 20180710
  Receipt Date: 20180710
  Transmission Date: 20181010
  Serious: Yes (Hospitalization)
  Sender: FDA-Public Use
  Company Number: US-MYLANLABS-2018M1049506

PATIENT
  Sex: Female

DRUGS (1)
  1. PREDNISONE. [Suspect]
     Active Substance: PREDNISONE
     Indication: HYPERCALCAEMIA
     Dosage: 1 MG/KG, QD
     Route: 065

REACTIONS (4)
  - Condition aggravated [Unknown]
  - Histiocytosis [Unknown]
  - Histoplasmosis [Unknown]
  - Histoplasmosis disseminated [Unknown]
